FAERS Safety Report 24030725 (Version 1)
Quarter: 2024Q2

REPORT INFORMATION
  Report Type: Spontaneous
  Country: US (occurrence: US)
  Receive Date: 20240628
  Receipt Date: 20240628
  Transmission Date: 20240716
  Serious: No
  Sender: FDA-Public Use
  Company Number: US-PFIZER INC-202400202571

PATIENT
  Sex: Female
  Weight: 86.18 kg

DRUGS (1)
  1. OXBRYTA [Suspect]
     Active Substance: VOXELOTOR
     Dosage: 500MG TABLET 3 TIMES A DAY

REACTIONS (2)
  - Abdominal pain upper [Unknown]
  - Off label use [Unknown]
